FAERS Safety Report 9735551 (Version 1)
Quarter: 2013Q4

REPORT INFORMATION
  Report Type: Spontaneous
  Country: US (occurrence: US)
  Receive Date: 20131206
  Receipt Date: 20131206
  Transmission Date: 20140711
  Serious: Yes (Hospitalization)
  Sender: FDA-Public Use
  Company Number: US-GILEAD-2009-0023875

PATIENT
  Sex: Male
  Weight: 76.2 kg

DRUGS (13)
  1. LETAIRIS [Suspect]
     Indication: PULMONARY ARTERIAL HYPERTENSION
     Route: 048
     Dates: start: 20090522
  2. OXYGEN [Concomitant]
  3. PEPCID [Concomitant]
  4. LASIX [Concomitant]
  5. FORADIL AEROLIZER [Concomitant]
  6. ASMANEX TWISTHALER [Concomitant]
  7. SODIUM CHLORIDE [Concomitant]
  8. REMODULIN [Concomitant]
  9. VIAGRA [Concomitant]
  10. TERAZOSIN [Concomitant]
  11. SIMVASTATIN [Concomitant]
  12. DILTIAZEM [Concomitant]
  13. ADULT ASPIRIN [Concomitant]

REACTIONS (1)
  - Anaemia [Unknown]
